FAERS Safety Report 5052939-4 (Version None)
Quarter: 2006Q3

REPORT INFORMATION
  Report Type: 
  Country: None (occurrence: None)
  Receive Date: 20060712
  Receipt Date: 20060701
  Transmission Date: 20061208
  Serious: Yes (Other)
  Sender: FDA-Public Use
  Company Number: SPV1-2006-00174

PATIENT
  Age: 31 Year
  Sex: Male

DRUGS (1)
  1. ADDERALL 10 [Suspect]
     Indication: ATTENTION DEFICIT/HYPERACTIVITY DISORDER
     Dosage: 30 MG DAILY
     Dates: start: 20060610, end: 20060630

REACTIONS (3)
  - FEELING ABNORMAL [None]
  - PRESCRIBED OVERDOSE [None]
  - RECTAL HAEMORRHAGE [None]
